FAERS Safety Report 7516740-1 (Version None)
Quarter: 2011Q2

REPORT INFORMATION
  Report Type: 
  Country: None (occurrence: None)
  Receive Date: 20110601
  Receipt Date: 20110516
  Transmission Date: 20111010
  Serious: No
  Sender: FDA-Public Use
  Company Number: US-B.I. PHARMACEUTICALS,INC./RIDGEFIELD-2011-BP-13262BP

PATIENT
  Sex: Female

DRUGS (11)
  1. VIT C [Concomitant]
     Indication: ROUTINE HEALTH MAINTENANCE
     Route: 048
  2. FISH OIL [Concomitant]
     Indication: ROUTINE HEALTH MAINTENANCE
     Route: 048
  3. GINKO [Concomitant]
     Indication: ROUTINE HEALTH MAINTENANCE
     Route: 048
  4. PRADAXA [Concomitant]
     Indication: ANTICOAGULANT THERAPY
  5. SPIRIVA [Suspect]
     Indication: LUNG DISORDER
     Dosage: 18 MCG
     Route: 055
     Dates: start: 20110401
  6. LISINOPRIL [Concomitant]
     Indication: MITRAL VALVE DISEASE
     Route: 048
     Dates: start: 20101201
  7. LUTEIN [Concomitant]
     Indication: MACULAR DEGENERATION
     Route: 048
  8. PRADAXA [Concomitant]
     Indication: ATRIAL FIBRILLATION
     Dosage: 300 MG
     Route: 048
     Dates: start: 20110101
  9. COREG [Concomitant]
     Indication: ATRIAL FIBRILLATION
     Route: 048
     Dates: start: 20110301
  10. VIT D [Concomitant]
     Indication: ROUTINE HEALTH MAINTENANCE
     Route: 048
  11. M.V.I. [Concomitant]
     Indication: ROUTINE HEALTH MAINTENANCE
     Route: 048

REACTIONS (1)
  - DRUG INEFFECTIVE [None]
